FAERS Safety Report 5188805-3 (Version None)
Quarter: 2006Q4

REPORT INFORMATION
  Report Type: 
  Country: None (occurrence: None)
  Receive Date: 20061214
  Receipt Date: 20061212
  Transmission Date: 20070319
  Serious: Yes (Other)
  Sender: FDA-Public Use
  Company Number: 009458

PATIENT
  Sex: Female

DRUGS (7)
  1. MEDROXYPROGESTERONE [Suspect]
     Dosage: ORAL
     Route: 048
     Dates: start: 19940101, end: 20021201
  2. ACTIVELLA [Suspect]
     Dosage: ORAL
     Route: 048
     Dates: start: 19940101, end: 20021201
  3. ESTRATAB [Suspect]
     Dosage: ORAL
     Route: 048
     Dates: start: 19940101, end: 20021201
  4. PREMARIN [Suspect]
     Dosage: ORAL
     Route: 048
     Dates: start: 19940101, end: 20021201
  5. PREMPRO [Suspect]
     Dosage: ORAL
     Route: 048
     Dates: start: 19940101, end: 20021201
  6. PREMPHASE 14/14 [Suspect]
     Dosage: ORAL
     Route: 048
     Dates: start: 19940101, end: 20021201
  7. PROVERA [Suspect]
     Dosage: ORAL
     Route: 048
     Dates: start: 19940101, end: 20021201

REACTIONS (1)
  - BREAST CANCER FEMALE [None]
